FAERS Safety Report 5618440-1 (Version None)
Quarter: 2008Q1

REPORT INFORMATION
  Report Type: 
  Country: None (occurrence: None)
  Receive Date: 20080204
  Receipt Date: 20080121
  Transmission Date: 20080703
  Serious: Yes (Other)
  Sender: FDA-Public Use
  Company Number: 2008S1000556

PATIENT
  Age: 78 Year
  Sex: Male
  Weight: 63.5036 kg

DRUGS (4)
  1. FLEET MINERAL OIL ENEMA [Suspect]
     Indication: CONSTIPATION
     Dosage: 133 ML;X1;RTL
     Route: 054
     Dates: start: 20080121, end: 20080121
  2. PERCOCET [Concomitant]
  3. MULTI-VITAMINS [Concomitant]
  4. DOCUSATE [Concomitant]

REACTIONS (1)
  - DRUG INEFFECTIVE [None]
